FAERS Safety Report 7851614-8 (Version None)
Quarter: 2011Q4

REPORT INFORMATION
  Report Type: 
  Country: None (occurrence: None)
  Receive Date: 20111026
  Receipt Date: 20111021
  Transmission Date: 20120403
  Serious: Yes (Hospitalization)
  Sender: FDA-Public Use
  Company Number: DE-ROCHE-1006745

PATIENT
  Age: 56 Year
  Sex: Female
  Weight: 65 kg

DRUGS (2)
  1. DOXORUBICIN HCL [Suspect]
     Indication: BREAST CANCER METASTATIC
     Dosage: DRUG: MYOCET; LAST DOSE PRIOR TO SAE: 11 OCT  2011
     Route: 042
     Dates: start: 20110628, end: 20111016
  2. AVASTIN [Suspect]
     Indication: BREAST CANCER METASTATIC
     Dosage: LAST DOSE PRIOR TO SAE: 11 OCT 2011
     Route: 042
     Dates: start: 20110628, end: 20111016

REACTIONS (1)
  - CONVULSION [None]
